FAERS Safety Report 8310287-0 (Version None)
Quarter: 2012Q2

REPORT INFORMATION
  Report Type: 
  Country: None (occurrence: None)
  Receive Date: 20120425
  Receipt Date: 20120417
  Transmission Date: 20120825
  Serious: Yes (Hospitalization)
  Sender: FDA-Public Use
  Company Number: US-PURDUE-USA-2012-0083624

PATIENT
  Sex: Male

DRUGS (2)
  1. OXYCONTIN [Suspect]
     Indication: ANALGESIC THERAPY
     Dosage: UNK
     Dates: end: 20120217
  2. NORCO [Concomitant]
     Indication: BREAKTHROUGH PAIN
     Dosage: 10 MG, UNK

REACTIONS (5)
  - INCORRECT DOSE ADMINISTERED [None]
  - ABDOMINAL OPERATION [None]
  - PAIN [None]
  - DRUG INEFFECTIVE [None]
  - PRODUCT SOLUBILITY ABNORMAL [None]
